FAERS Safety Report 19991266 (Version 1)
Quarter: 2021Q4

REPORT INFORMATION
  Report Type: Spontaneous
  Country: US (occurrence: US)
  Receive Date: 20211025
  Receipt Date: 20211025
  Transmission Date: 20220303
  Serious: Yes (Death)
  Sender: FDA-Public Use
  Company Number: None

PATIENT
  Age: 90 Year
  Sex: Female
  Weight: 65.77 kg

DRUGS (15)
  1. BEXAROTENE [Suspect]
     Active Substance: BEXAROTENE
     Route: 048
     Dates: start: 20200512, end: 20211023
  2. TARGRETIN [Concomitant]
     Active Substance: BEXAROTENE
  3. METFORMIN [Concomitant]
     Active Substance: METFORMIN HYDROCHLORIDE
  4. PIOGLITAZONE [Concomitant]
     Active Substance: PIOGLITAZONE
  5. AMLODIPINE [Concomitant]
     Active Substance: AMLODIPINE BESYLATE
  6. LISINOPRIL [Concomitant]
     Active Substance: LISINOPRIL
  7. VITAMIN D3 [Concomitant]
     Active Substance: CHOLECALCIFEROL
  8. VITAMIN B COMPLEX [Concomitant]
     Active Substance: CYANOCOBALAMIN\DEXPANTHENOL\NIACINAMIDE\PYRIDOXINE HYDROCHLORIDE\RIBOFLAVIN 5^-PHOSPHATE SODIUM\THIA
  9. GLIPIZIDE [Concomitant]
     Active Substance: GLIPIZIDE
  10. LEVOTHYROXINE [Concomitant]
     Active Substance: LEVOTHYROXINE
  11. VENLAFAXINE [Concomitant]
     Active Substance: VENLAFAXINE HYDROCHLORIDE
  12. MIRTAZAPINE [Concomitant]
     Active Substance: MIRTAZAPINE
  13. MELATONIN [Concomitant]
     Active Substance: MELATONIN
  14. ATORVASTATIN [Concomitant]
     Active Substance: ATORVASTATIN
  15. CYANOCOBALAMIN [Concomitant]
     Active Substance: CYANOCOBALAMIN

REACTIONS (1)
  - Death [None]

NARRATIVE: CASE EVENT DATE: 20211023
